FAERS Safety Report 11610740 (Version 1)
Quarter: 2015Q4

REPORT INFORMATION
  Report Type: Spontaneous
  Country: BE (occurrence: BE)
  Receive Date: 20151008
  Receipt Date: 20151008
  Transmission Date: 20160304
  Serious: Yes (Other)
  Sender: FDA-Public Use
  Company Number: BE-AMGEN-BELSP2015102644

PATIENT
  Age: 39 Year
  Sex: Female

DRUGS (1)
  1. NPLATE [Suspect]
     Active Substance: ROMIPLOSTIM
     Indication: IMMUNE THROMBOCYTOPENIC PURPURA
     Dosage: 1 MUG/KG, Q8WK
     Route: 058
     Dates: start: 20140821

REACTIONS (8)
  - Thrombocytopenia [Unknown]
  - Platelet count increased [Unknown]
  - Off label use [Unknown]
  - Pulmonary embolism [Unknown]
  - No therapeutic response [Unknown]
  - Large granular lymphocytosis [Unknown]
  - Splenectomy [Unknown]
  - Drug effect delayed [Unknown]

NARRATIVE: CASE EVENT DATE: 20140821
